FAERS Safety Report 23882076 (Version 3)
Quarter: 2024Q2

REPORT INFORMATION
  Report Type: Spontaneous
  Country: GB (occurrence: GB)
  Receive Date: 20240521
  Receipt Date: 20240613
  Transmission Date: 20240716
  Serious: Yes (Hospitalization, Other)
  Sender: FDA-Public Use
  Company Number: GB-Merck Healthcare KGaA-2024027334

PATIENT
  Sex: Female

DRUGS (1)
  1. REBIF [Suspect]
     Active Substance: INTERFERON BETA-1A
     Indication: Multiple sclerosis
     Route: 058
     Dates: start: 2024

REACTIONS (4)
  - Haemorrhoids [Unknown]
  - Skin ulcer [Unknown]
  - Uterine prolapse [Unknown]
  - Bladder catheterisation [Unknown]
